FAERS Safety Report 12783236 (Version 1)
Quarter: 2016Q3

REPORT INFORMATION
  Report Type: Spontaneous
  Country: US (occurrence: US)
  Receive Date: 20160927
  Receipt Date: 20160927
  Transmission Date: 20161109
  Serious: Yes (Other)
  Sender: FDA-Public Use
  Company Number: US-BEH-2011028374

PATIENT
  Age: 40 Year
  Sex: Female
  Weight: 53.53 kg

DRUGS (10)
  1. MEDROL [Concomitant]
     Active Substance: METHYLPREDNISOLONE
  2. VITAMIN D [Concomitant]
     Active Substance: CHOLECALCIFEROL
  3. METHYLCOBALAMIN. [Concomitant]
     Active Substance: METHYLCOBALAMIN
  4. TURMERIC [Concomitant]
     Active Substance: TURMERIC
  5. CALCIUM [Concomitant]
     Active Substance: CALCIUM
  6. HIZENTRA [Suspect]
     Active Substance: HUMAN IMMUNOGLOBULIN G
     Indication: DERMATOMYOSITIS
     Dosage: 42 GRAMS (210ML) TOTAL INFUSED 2-3 TIMES PER WEEK OVER APPROX 1.5 - 2 HRS
     Route: 058
     Dates: start: 20110324
  7. NEXIUM [Concomitant]
     Active Substance: ESOMEPRAZOLE MAGNESIUM
  8. ACTONEL [Concomitant]
     Active Substance: RISEDRONATE SODIUM
  9. MULTIVITAMIN [Concomitant]
     Active Substance: VITAMINS
  10. HIZENTRA [Suspect]
     Active Substance: HUMAN IMMUNOGLOBULIN G
     Route: 058
     Dates: start: 20110324

REACTIONS (2)
  - Bradycardia [Recovered/Resolved]
  - Dizziness [Recovered/Resolved]

NARRATIVE: CASE EVENT DATE: 20110324
